FAERS Safety Report 10143345 (Version 1)
Quarter: 2014Q2

REPORT INFORMATION
  Report Type: Spontaneous
  Country: FR (occurrence: FR)
  Receive Date: 20140430
  Receipt Date: 20140430
  Transmission Date: 20141212
  Serious: Yes (Hospitalization, Other)
  Sender: FDA-Public Use
  Company Number: FR-UCBSA-119416

PATIENT
  Age: 60 Year
  Sex: Female

DRUGS (2)
  1. KEPPRA [Suspect]
     Indication: MYOCLONUS
     Dates: start: 2013, end: 2014
  2. TEGRETOL [Suspect]
     Indication: MYOCLONUS
     Dates: start: 2013, end: 2014

REACTIONS (2)
  - Status epilepticus [Recovered/Resolved]
  - Bone marrow failure [Not Recovered/Not Resolved]
